FAERS Safety Report 6168743-X (Version None)
Quarter: 2009Q2

REPORT INFORMATION
  Report Type: 
  Country: None (occurrence: None)
  Receive Date: 20090427
  Receipt Date: 20090417
  Transmission Date: 20091009
  Serious: Yes (Other)
  Sender: FDA-Public Use
  Company Number: US-MERCK-0904USA02868

PATIENT
  Age: 59 Year
  Sex: Female
  Weight: 68 kg

DRUGS (13)
  1. FOSAMAX [Suspect]
     Indication: PROPHYLAXIS
     Route: 048
     Dates: start: 19990101
  2. FOSAMAX [Suspect]
     Route: 048
     Dates: start: 20050101
  3. PULMICORT [Concomitant]
     Indication: CHRONIC OBSTRUCTIVE PULMONARY DISEASE
     Route: 048
     Dates: start: 19990101
  4. PULMICORT [Concomitant]
     Indication: EMPHYSEMA
     Route: 048
     Dates: start: 19990101
  5. COMBIVENT [Concomitant]
     Indication: CHRONIC OBSTRUCTIVE PULMONARY DISEASE
     Route: 048
     Dates: start: 19990101
  6. COMBIVENT [Concomitant]
     Indication: EMPHYSEMA
     Route: 048
     Dates: start: 19990101
  7. SINGULAIR [Concomitant]
     Route: 048
  8. LASIX [Concomitant]
     Route: 065
  9. POTASSIUM CHLORIDE [Concomitant]
     Route: 065
     Dates: start: 19990101
  10. ASCORBIC ACID AND FERROUS FUMARATE AND VITAMIN B COMPLEX AND VITAMIN E [Concomitant]
     Route: 048
     Dates: start: 19990101
  11. UBIDECARENONE [Concomitant]
     Route: 048
     Dates: start: 19990101
  12. RED YEAST [Concomitant]
     Route: 048
     Dates: start: 19990101
  13. CALCIUM (UNSPECIFIED) AND VITAMIN D (UNSPECIFIED) [Concomitant]
     Route: 048
     Dates: start: 19990101

REACTIONS (12)
  - ALLERGY TO ANIMAL [None]
  - CATARACT [None]
  - COUGH [None]
  - IRIDOCYCLITIS [None]
  - IRIS ADHESIONS [None]
  - IRITIS [None]
  - MACULAR DEGENERATION [None]
  - OPTIC NEURITIS [None]
  - OSTEONECROSIS [None]
  - PHOTOPHOBIA [None]
  - UVEITIS [None]
  - VITRITIS [None]
